FAERS Safety Report 12528377 (Version 2)
Quarter: 2017Q4

REPORT INFORMATION
  Report Type: Report from Study
  Country: JP (occurrence: JP)
  Receive Date: 20160705
  Receipt Date: 20171219
  Transmission Date: 20180320
  Serious: Yes (Hospitalization, Other)
  Sender: FDA-Public Use
  Company Number: JP-BRISTOL-MYERS SQUIBB COMPANY-BMS-2016-044328

PATIENT
  Age: 53 Year
  Sex: Male
  Weight: 60 kg

DRUGS (7)
  1. ADALAT [Concomitant]
     Active Substance: NIFEDIPINE
     Indication: HYPERTENSION
     Dosage: 40 MG, SINGLE
     Route: 048
  2. APIXABAN [Suspect]
     Active Substance: APIXABAN
     Indication: CEREBROVASCULAR ACCIDENT PROPHYLAXIS
     Dosage: 5 MG, BID
     Route: 048
     Dates: start: 20140417
  3. CLOPIDOGREL BISULFATE. [Concomitant]
     Active Substance: CLOPIDOGREL BISULFATE
     Indication: MYOCARDIAL INFARCTION
     Dosage: 75 MG, SINGLE
     Route: 065
     Dates: start: 20140418
  4. OLMETEC [Concomitant]
     Active Substance: OLMESARTAN MEDOXOMIL
     Indication: HYPERTENSION
     Dosage: 20 MG, SINGLE
     Route: 048
  5. CRESTOR [Concomitant]
     Active Substance: ROSUVASTATIN CALCIUM
     Indication: HYPERCHOLESTEROLAEMIA
     Dosage: 2.5 MG, SINGLE
     Route: 048
     Dates: start: 20140418
  6. NEXIUM [Concomitant]
     Active Substance: ESOMEPRAZOLE MAGNESIUM
     Indication: PROPHYLAXIS
     Dosage: 20 MG, SINGLE
     Route: 048
     Dates: start: 20140415
  7. ACETYLSALICYLIC ACID [Concomitant]
     Active Substance: ASPIRIN
     Indication: MYOCARDIAL INFARCTION
     Dosage: 100 MG, SINGLE
     Route: 065
     Dates: start: 20140415

REACTIONS (3)
  - Postinfarction angina [Recovered/Resolved]
  - Coronary arterial stent insertion [Unknown]
  - Alcoholic liver disease [Recovered/Resolved]

NARRATIVE: CASE EVENT DATE: 20151217
